FAERS Safety Report 5390392-1 (Version None)
Quarter: 2007Q3

REPORT INFORMATION
  Report Type: 
  Country: None (occurrence: None)
  Receive Date: 20070718
  Receipt Date: 20061109
  Transmission Date: 20080115
  Serious: No
  Sender: FDA-Public Use
  Company Number: US-KINGPHARMUSA00001-K200601435

PATIENT

DRUGS (2)
  1. LEVOXYL [Suspect]
     Indication: HYPOTHYROIDISM
     Dosage: 25 MCG, QD
     Route: 048
     Dates: start: 20061107
  2. DARVOCET                           /00758701/ [Concomitant]
     Indication: ARTHRALGIA
     Route: 048
     Dates: start: 19950101

REACTIONS (1)
  - HEART RATE INCREASED [None]
